FAERS Safety Report 6457674-3 (Version None)
Quarter: 2009Q4

REPORT INFORMATION
  Report Type: 
  Country: None (occurrence: None)
  Receive Date: 20091125
  Receipt Date: 20091116
  Transmission Date: 20100525
  Serious: Yes (Disabling)
  Sender: FDA-Public Use
  Company Number: AU-ASTRAZENECA-2009SE15008

PATIENT
  Age: 46 Year
  Sex: Male

DRUGS (2)
  1. CRESTOR [Suspect]
     Indication: BLOOD CHOLESTEROL INCREASED
     Route: 048
     Dates: start: 20090101, end: 20090924
  2. CRESTOR [Suspect]
     Indication: BLOOD TRIGLYCERIDES INCREASED
     Route: 048
     Dates: start: 20090101, end: 20090924

REACTIONS (2)
  - RASH [None]
  - SKIN LESION [None]
